FAERS Safety Report 6628261-9 (Version None)
Quarter: 2010Q1

REPORT INFORMATION
  Report Type: 
  Country: None (occurrence: None)
  Receive Date: 20100311
  Receipt Date: 20100302
  Transmission Date: 20100710
  Serious: Yes (Other)
  Sender: FDA-Public Use
  Company Number: PHEH2009US02808

PATIENT
  Sex: Female

DRUGS (14)
  1. ELIDEL [Suspect]
     Indication: ALOPECIA
     Dosage: UNK
     Route: 061
     Dates: start: 20020301
  2. COMPAZINE [Concomitant]
  3. COUMADIN [Concomitant]
  4. ANZEMET [Concomitant]
  5. PAXIL [Suspect]
  6. NEXIUM [Concomitant]
  7. AMOXICILLIN [Concomitant]
  8. LEVAQUIN [Concomitant]
  9. ZITHROMAX [Concomitant]
  10. AUGMENTIN                               /SCH/ [Concomitant]
  11. PAROXETINE HCL [Concomitant]
  12. OXYCODONE HCL AND ACETAMINOPHEN [Concomitant]
  13. FAMOTIDINE [Concomitant]
  14. HYDROCODONE [Concomitant]

REACTIONS (8)
  - ANXIETY [None]
  - DEPRESSION [None]
  - HODGKIN'S DISEASE [None]
  - INJURY [None]
  - JUGULAR VEIN THROMBOSIS [None]
  - MUCOSAL INFLAMMATION [None]
  - NEUTROPENIA [None]
  - RENAL CYST [None]
